FAERS Safety Report 6175878-4 (Version None)
Quarter: 2009Q2

REPORT INFORMATION
  Report Type: 
  Country: None (occurrence: None)
  Receive Date: 20090501
  Receipt Date: 20090427
  Transmission Date: 20091009
  Serious: Yes (Hospitalization)
  Sender: FDA-Public Use
  Company Number: JP-ASTRAZENECA-2009AP02597

PATIENT
  Age: 18292 Day
  Sex: Male
  Weight: 90 kg

DRUGS (8)
  1. CRESTOR [Suspect]
     Indication: HYPERCHOLESTEROLAEMIA
     Route: 048
     Dates: start: 20090114, end: 20090121
  2. FLUMARIN [Suspect]
     Dosage: 2-3/DAY
     Route: 041
     Dates: start: 20090105, end: 20090107
  3. FLOMOX [Suspect]
     Route: 048
     Dates: start: 20090112, end: 20090117
  4. LOXONIN [Concomitant]
     Indication: ANALGESIA
     Route: 048
     Dates: start: 20081226, end: 20090105
  5. ADALAT CC [Concomitant]
     Indication: HYPERTENSION
     Route: 048
     Dates: start: 20081227, end: 20090107
  6. ADALAT CC [Concomitant]
     Route: 048
     Dates: start: 20090107, end: 20090120
  7. ADALAT CC [Concomitant]
     Route: 048
     Dates: start: 20090121
  8. PERINDOPRIL ERBUMINE [Concomitant]
     Indication: HYPERTENSION
     Route: 048
     Dates: start: 20090121

REACTIONS (1)
  - LIVER DISORDER [None]
